FAERS Safety Report 5990413-9 (Version None)
Quarter: 2008Q4

REPORT INFORMATION
  Report Type: 
  Country: None (occurrence: None)
  Receive Date: 20081209
  Receipt Date: 20081124
  Transmission Date: 20090506
  Serious: Yes (Death)
  Sender: FDA-Public Use
  Company Number: 1000001783

PATIENT
  Age: 65 Year
  Sex: Male
  Weight: 61 kg

DRUGS (8)
  1. CITALOPRAM HYDROBROMIDE [Suspect]
     Indication: DEPRESSION
     Dosage: (20 MG), ORAL
     Route: 048
     Dates: start: 20050101
  2. SIFROL (TABLETS) [Suspect]
     Indication: RESTLESS LEGS SYNDROME
     Dosage: (0.125 MG), ORAL
     Dates: end: 20080516
  3. MIRTAZAPINE [Suspect]
     Indication: DEPRESSION
     Dosage: 15 MG (15 MG, 1 IN 1 D), ORAL
     Route: 048
     Dates: start: 20080501, end: 20080101
  4. OXAZEPAM [Concomitant]
  5. RIVOTRIL (TABLETS) [Concomitant]
  6. SELEKTINE (TABLETS) [Concomitant]
  7. EZETROL (TABLETS) [Concomitant]
  8. CODIOVAN (TABLETS) [Concomitant]

REACTIONS (4)
  - COMPLETED SUICIDE [None]
  - DEPRESSION [None]
  - DRUG INTERACTION [None]
  - MANIA [None]
